FAERS Safety Report 10667996 (Version 1)
Quarter: 2014Q4

REPORT INFORMATION
  Report Type: Spontaneous
  Country: US (occurrence: US)
  Receive Date: 20141222
  Receipt Date: 20141222
  Transmission Date: 20150529
  Serious: Yes (Other)
  Sender: FDA-Public Use
  Company Number: US-BAYER-2014-183229

PATIENT
  Sex: Female
  Weight: 43.99 kg

DRUGS (3)
  1. CITRACAL PETITES [Suspect]
     Active Substance: CALCIUM CITRATE
     Dosage: 2 DF, BID, 230CT
     Route: 048
  2. CENTRUM [Concomitant]
     Active Substance: VITAMINS
  3. BAYER LOW DOSE [Suspect]
     Active Substance: ASPIRIN
     Indication: ANTICOAGULANT THERAPY
     Dosage: 1 DF, QD
     Route: 048

REACTIONS (6)
  - Haemorrhage [Recovered/Resolved]
  - Retching [Recovered/Resolved]
  - Choking [Recovered/Resolved]
  - Throat irritation [Not Recovered/Not Resolved]
  - Intentional product misuse [None]
  - Fall [None]
